FAERS Safety Report 12502879 (Version 2)
Quarter: 2016Q3

REPORT INFORMATION
  Report Type: Spontaneous
  Country: JP (occurrence: JP)
  Receive Date: 20160628
  Receipt Date: 20160720
  Transmission Date: 20161109
  Serious: Yes (Death, Hospitalization)
  Sender: FDA-Public Use
  Company Number: JP-ACTELION-A-CH2016-138243

PATIENT
  Age: 66 Year
  Sex: Male

DRUGS (5)
  1. TRACLEER [Suspect]
     Active Substance: BOSENTAN
     Indication: PULMONARY ARTERIAL HYPERTENSION
     Dosage: 125 MG, BID
     Route: 048
     Dates: start: 20150610, end: 20150626
  2. TRACLEER [Suspect]
     Active Substance: BOSENTAN
     Dosage: 62.5 MG, QD
     Route: 048
     Dates: start: 20130428, end: 20130529
  3. TRACLEER [Suspect]
     Active Substance: BOSENTAN
     Dosage: 31.25 MG, QD
     Route: 048
     Dates: start: 20130424, end: 20130427
  4. OXYGEN. [Concomitant]
     Active Substance: OXYGEN
  5. TRACLEER [Suspect]
     Active Substance: BOSENTAN
     Dosage: 125 MG, QD
     Route: 048
     Dates: start: 20130530, end: 20150609

REACTIONS (2)
  - Cardiac failure [Fatal]
  - Condition aggravated [Fatal]

NARRATIVE: CASE EVENT DATE: 20150426
